FAERS Safety Report 5412644-9 (Version None)
Quarter: 2007Q3

REPORT INFORMATION
  Report Type: 
  Country: None (occurrence: None)
  Receive Date: 20070813
  Receipt Date: 20070730
  Transmission Date: 20080115
  Serious: Yes (Death)
  Sender: FDA-Public Use
  Company Number: JP-ROCHE-453977

PATIENT
  Age: 12 Year
  Sex: Male

DRUGS (2)
  1. TAMIFLU [Suspect]
     Route: 048
     Dates: start: 20060703, end: 20060703
  2. CALONAL [Concomitant]
     Dosage: REPORTED AS FINE GRANULE.
     Route: 048
     Dates: start: 20060703, end: 20060703

REACTIONS (15)
  - BRAIN OEDEMA [None]
  - CARDIO-RESPIRATORY ARREST [None]
  - CLAVICLE FRACTURE [None]
  - EXSANGUINATION [None]
  - FALL [None]
  - FOREARM FRACTURE [None]
  - HAEMORRHAGE [None]
  - HAND FRACTURE [None]
  - INJURY [None]
  - PELVIC FRACTURE [None]
  - RIB FRACTURE [None]
  - STERNAL FRACTURE [None]
  - SUBARACHNOID HAEMORRHAGE [None]
  - SUBDURAL HAEMORRHAGE [None]
  - TIBIA FRACTURE [None]
